FAERS Safety Report 14871846 (Version 1)
Quarter: 2018Q2

REPORT INFORMATION
  Report Type: Spontaneous
  Country: US (occurrence: US)
  Receive Date: 20180509
  Receipt Date: 20180509
  Transmission Date: 20180711
  Serious: No
  Sender: FDA-Public Use
  Company Number: US-VIFOR (INTERNATIONAL) INC.-VIT-2018-04317

PATIENT
  Sex: Male

DRUGS (18)
  1. BACTRIM DS [Concomitant]
     Active Substance: SULFAMETHOXAZOLE\TRIMETHOPRIM
  2. FLOMAX [Concomitant]
     Active Substance: TAMSULOSIN HYDROCHLORIDE
  3. LIPITOR [Concomitant]
     Active Substance: ATORVASTATIN CALCIUM
  4. ACETYLSALICYLIC ACID [Concomitant]
     Active Substance: ASPIRIN
  5. PROGRAF [Concomitant]
     Active Substance: TACROLIMUS\TACROLIMUS ANHYDROUS
  6. COLACE [Concomitant]
     Active Substance: DOCUSATE SODIUM
  7. HUMALOG [Concomitant]
     Active Substance: INSULIN LISPRO
  8. LACTULOSE. [Concomitant]
     Active Substance: LACTULOSE
  9. LANTUS [Concomitant]
     Active Substance: INSULIN GLARGINE
  10. VITAMINS NOS [Concomitant]
     Active Substance: VITAMINS
  11. PEPCID [Concomitant]
     Active Substance: FAMOTIDINE
  12. PREDNISONE. [Concomitant]
     Active Substance: PREDNISONE
  13. COREG [Concomitant]
     Active Substance: CARVEDILOL
  14. VALGANCICLOVIR HYDROCHLORIDE. [Concomitant]
     Active Substance: VALGANCICLOVIR HYDROCHLORIDE
  15. VELTASSA [Suspect]
     Active Substance: PATIROMER
     Indication: HYPERKALAEMIA
     Route: 048
     Dates: start: 20160405
  16. CELLCEPT [Concomitant]
     Active Substance: MYCOPHENOLATE MOFETIL\MYCOPHENOLATE MOFETIL HYDROCHLORIDE
  17. KAYEXALATE [Concomitant]
     Active Substance: SODIUM POLYSTYRENE SULFONATE
  18. ULTRAM [Concomitant]
     Active Substance: TRAMADOL HYDROCHLORIDE

REACTIONS (1)
  - Constipation [Unknown]
